FAERS Safety Report 22001762 (Version 2)
Quarter: 2023Q1

REPORT INFORMATION
  Report Type: Spontaneous
  Country: US (occurrence: US)
  Receive Date: 20230216
  Receipt Date: 20230227
  Transmission Date: 20230417
  Serious: Yes (Hospitalization)
  Sender: FDA-Public Use
  Company Number: US-TEVA-2023-US-2854787

PATIENT

DRUGS (13)
  1. PREDNISONE [Suspect]
     Active Substance: PREDNISONE
     Indication: Giant cell arteritis
     Dosage: 60MG, SCHEDULED TO 10 DAY TAPERING
     Route: 048
  2. METHYLPREDNISOLONE [Suspect]
     Active Substance: METHYLPREDNISOLONE
     Indication: Giant cell arteritis
     Dosage: 1 GRAM DAILY; ONCE DAILY
     Route: 065
  3. ATORVASTATIN [Suspect]
     Active Substance: ATORVASTATIN
     Indication: Giant cell arteritis
     Dosage: 80 MILLIGRAM DAILY; ONCE DAILY
     Route: 065
  4. CLOPIDOGREL [Suspect]
     Active Substance: CLOPIDOGREL BISULFATE
     Indication: Giant cell arteritis
     Dosage: 75 MILLIGRAM DAILY; ONCE DAILY
     Route: 065
  5. FAMOTIDINE [Suspect]
     Active Substance: FAMOTIDINE
     Indication: Giant cell arteritis
     Dosage: 20 MILLIGRAM DAILY; ONCE DAILY
     Route: 065
  6. FAMOTIDINE [Suspect]
     Active Substance: FAMOTIDINE
     Indication: Prophylaxis against gastrointestinal ulcer
  7. TOCILIZUMAB [Suspect]
     Active Substance: TOCILIZUMAB
     Indication: Giant cell arteritis
     Dosage: 2 MG/KG/WEEK
     Route: 042
  8. CYCLOPHOSPHAMIDE [Suspect]
     Active Substance: CYCLOPHOSPHAMIDE
     Indication: Giant cell arteritis
     Dosage: PULSE CYCLOPHOSPHAMIDE
     Route: 042
  9. ASPIRIN [Suspect]
     Active Substance: ASPIRIN
     Indication: Giant cell arteritis
     Dosage: DUAL ANTIPLATELET THERAPY, 81MG
     Route: 065
  10. ABATACEPT [Suspect]
     Active Substance: ABATACEPT
     Indication: Giant cell arteritis
     Dosage: 10 MG/KG
     Route: 042
  11. VERAPAMIL [Concomitant]
     Active Substance: VERAPAMIL HYDROCHLORIDE
     Indication: Giant cell arteritis
     Dosage: 20 MG OVER 15 MINUTES INFUSION
     Route: 013
  12. VERAPAMIL [Concomitant]
     Active Substance: VERAPAMIL HYDROCHLORIDE
     Dosage: 10MG
     Route: 013
  13. NIMODIPINE [Concomitant]
     Active Substance: NIMODIPINE
     Indication: Giant cell arteritis
     Route: 048

REACTIONS (2)
  - Pneumatosis [Recovering/Resolving]
  - Drug ineffective [Unknown]
